FAERS Safety Report 4358833-6 (Version None)
Quarter: 2004Q2

REPORT INFORMATION
  Report Type: 
  Country: None (occurrence: None)
  Receive Date: 20040512
  Receipt Date: 20040504
  Transmission Date: 20050107
  Serious: Yes (Death, Hospitalization)
  Sender: FDA-Public Use
  Company Number: 2004-04-1765

PATIENT
  Age: 47 Year
  Sex: Female
  Weight: 65 kg

DRUGS (11)
  1. PEG-INTRON ALFA-2B INJECTABLE [Suspect]
     Indication: CHRONIC HEPATITIS
     Dosage: SEE IMAGE
     Route: 058
     Dates: start: 20030902, end: 20030909
  2. PEG-INTRON ALFA-2B INJECTABLE [Suspect]
     Indication: CHRONIC HEPATITIS
     Dosage: SEE IMAGE
     Route: 058
     Dates: start: 20030909, end: 20030923
  3. PEG-INTRON ALFA-2B INJECTABLE [Suspect]
     Indication: CHRONIC HEPATITIS
     Dosage: SEE IMAGE
     Route: 058
     Dates: start: 20030902, end: 20040308
  4. PEG-INTRON ALFA-2B INJECTABLE [Suspect]
     Indication: CHRONIC HEPATITIS
     Dosage: SEE IMAGE
     Route: 058
     Dates: start: 20030923, end: 20040308
  5. RIBAVIRIN [Suspect]
     Indication: CHRONIC HEPATITIS
     Dosage: 800 MG QD ORAL
     Route: 048
     Dates: start: 20030902, end: 20040308
  6. ACYCLOVIR [Concomitant]
  7. PENTASA [Concomitant]
  8. PAXIL [Concomitant]
  9. SERTRALINE [Concomitant]
  10. METHADONE [Concomitant]
  11. SERAX [Concomitant]

REACTIONS (3)
  - ABDOMINAL PAIN [None]
  - HEPATIC FAILURE [None]
  - WEIGHT DECREASED [None]
